FAERS Safety Report 7084245-0 (Version None)
Quarter: 2010Q4

REPORT INFORMATION
  Report Type: 
  Country: None (occurrence: None)
  Receive Date: 20101104
  Receipt Date: 20101029
  Transmission Date: 20110411
  Serious: Yes (Hospitalization)
  Sender: FDA-Public Use
  Company Number: FR-PFIZER INC-2010137779

PATIENT
  Age: 85 Year
  Sex: Female

DRUGS (5)
  1. TRIFLUCAN [Suspect]
     Dosage: 400 MG, 1X/DAY
     Dates: start: 20100824, end: 20100924
  2. FOSFOMYCIN [Suspect]
     Dosage: 4 G, 2X/DAY
     Route: 042
     Dates: start: 20100910, end: 20100924
  3. FORTUM [Suspect]
     Dosage: 2 G, 3X/DAY
     Route: 042
     Dates: start: 20100910, end: 20100924
  4. DIFFU K [Concomitant]
  5. LOXEN [Concomitant]
     Dosage: 20 MG

REACTIONS (3)
  - BLOOD BILIRUBIN INCREASED [None]
  - LIVER INJURY [None]
  - TRANSAMINASES INCREASED [None]
